FAERS Safety Report 10721181 (Version 1)
Quarter: 2015Q1

REPORT INFORMATION
  Report Type: Spontaneous
  Country: US (occurrence: US)
  Receive Date: 20150119
  Receipt Date: 20150119
  Transmission Date: 20150721
  Serious: No
  Sender: FDA-Public Use
  Company Number: US-UNITED THERAPEUTICS-UNT-2014-008494

PATIENT
  Sex: Female
  Weight: 106.58 kg

DRUGS (1)
  1. REMODULIN [Suspect]
     Active Substance: TREPROSTINIL
     Indication: PULMONARY HYPERTENSION
     Dosage: 0.064 ?G/KG/MIN, CONTINUING
     Route: 041
     Dates: start: 20070401

REACTIONS (5)
  - Oxygen consumption increased [Unknown]
  - Emotional distress [Unknown]
  - Back pain [Not Recovered/Not Resolved]
  - Musculoskeletal discomfort [Unknown]
  - Chest pain [Unknown]
